FAERS Safety Report 8870161 (Version 1)
Quarter: 2012Q4

REPORT INFORMATION
  Report Type: Spontaneous
  Country: US (occurrence: None)
  Receive Date: 20121025
  Receipt Date: 20121025
  Transmission Date: 20130627
  Serious: Yes (Life-Threatening, Hospitalization)
  Sender: FDA-Public Use
  Company Number: None

PATIENT
  Age: 62 Year
  Sex: Male
  Weight: 90.72 kg

DRUGS (1)
  1. EXFORGE [Suspect]
     Indication: BLOOD PRESSURE HIGH
     Dosage: Once Daily
     Dates: start: 20090906, end: 20121002

REACTIONS (13)
  - Abdominal pain upper [None]
  - Nausea [None]
  - Asthenia [None]
  - Retching [None]
  - Vomiting [None]
  - Activities of daily living impaired [None]
  - Insomnia [None]
  - Fluid intake reduced [None]
  - Hypophagia [None]
  - Impaired work ability [None]
  - Vision blurred [None]
  - Balance disorder [None]
  - Feeling abnormal [None]
